FAERS Safety Report 13100925 (Version 4)
Quarter: 2017Q2

REPORT INFORMATION
  Report Type: Report from Study
  Country: FR (occurrence: FR)
  Receive Date: 20170110
  Receipt Date: 20170515
  Transmission Date: 20170830
  Serious: Yes (Hospitalization)
  Sender: FDA-Public Use
  Company Number: FR-PFIZER INC-2017003717

PATIENT
  Age: 80 Year
  Sex: Female

DRUGS (3)
  1. FULVESTRANT [Concomitant]
     Active Substance: FULVESTRANT
     Dosage: 500 MG, UNK
     Dates: start: 20161103
  2. PALBOCICLIB [Suspect]
     Active Substance: PALBOCICLIB
     Indication: BREAST CANCER METASTATIC
     Dosage: 125 MG, 1X/DAY
     Route: 048
     Dates: start: 20161103
  3. PALBOCICLIB [Suspect]
     Active Substance: PALBOCICLIB
     Dosage: 100 MG, DAILY
     Dates: start: 20170118

REACTIONS (3)
  - Bronchopneumopathy [Recovered/Resolved]
  - Neutropenia [Not Recovered/Not Resolved]
  - Haemoglobin decreased [Unknown]

NARRATIVE: CASE EVENT DATE: 20161219
